FAERS Safety Report 6792620-4 (Version None)
Quarter: 2010Q2

REPORT INFORMATION
  Report Type: 
  Country: None (occurrence: None)
  Receive Date: 20100624
  Receipt Date: 20080829
  Transmission Date: 20101027
  Serious: Yes (Other)
  Sender: FDA-Public Use
  Company Number: US-PFIZER INC-2008066389

PATIENT
  Sex: Male
  Weight: 106 kg

DRUGS (18)
  1. SUTENT [Suspect]
     Indication: RENAL CANCER
     Dates: start: 20080624
  2. LASIX [Concomitant]
  3. COREG [Concomitant]
     Route: 048
  4. COMPAZINE [Concomitant]
     Route: 048
  5. PREDNISONE [Concomitant]
     Route: 048
  6. NEURONTIN [Concomitant]
  7. WARFARIN SODIUM [Concomitant]
     Route: 048
  8. MONTELUKAST SODIUM [Concomitant]
  9. INSPRA [Concomitant]
  10. VALSARTAN [Concomitant]
     Route: 048
  11. SIMVASTATIN [Concomitant]
     Route: 048
  12. ZETIA [Concomitant]
  13. ACETYLSALICYLIC ACID [Concomitant]
  14. DIGOXIN [Concomitant]
     Route: 048
  15. POTASSIUM [Concomitant]
  16. MULTI-VITAMINS [Concomitant]
  17. ALLOPURINOL [Concomitant]
  18. COENZYME Q10 [Concomitant]

REACTIONS (2)
  - BLOOD ERYTHROPOIETIN INCREASED [None]
  - HEPATIC FAILURE [None]
